FAERS Safety Report 15454719 (Version 2)
Quarter: 2019Q2

REPORT INFORMATION
  Report Type: Report from Study
  Country: US (occurrence: US)
  Receive Date: 20181002
  Receipt Date: 20190407
  Transmission Date: 20190711
  Serious: Yes (Other)
  Sender: FDA-Public Use
  Company Number: PHEH2018US040821

PATIENT
  Sex: Male

DRUGS (1)
  1. KYMRIAH [Suspect]
     Active Substance: TISAGENLECLEUCEL
     Indication: ACUTE LYMPHOCYTIC LEUKAEMIA
     Dosage: UNK
     Route: 042
     Dates: start: 20160119, end: 20160119

REACTIONS (4)
  - Gastroenteritis Escherichia coli [Unknown]
  - Gastrointestinal infection [Unknown]
  - Cytokine release syndrome [Unknown]
  - Gastroenteritis salmonella [Unknown]
